FAERS Safety Report 9708286 (Version 2)
Quarter: 2013Q4

REPORT INFORMATION
  Report Type: Spontaneous
  Country: US (occurrence: US)
  Receive Date: 20131125
  Receipt Date: 20131224
  Transmission Date: 20140711
  Serious: Yes (Life-Threatening, Other)
  Sender: FDA-Public Use
  Company Number: US-BRISTOL-MYERS SQUIBB COMPANY-19827617

PATIENT
  Age: 84 Year
  Sex: Male

DRUGS (1)
  1. KOMBIGLYZE XR [Suspect]
     Indication: TYPE 2 DIABETES MELLITUS
     Dosage: 1 DF = KOMBIGLYZE XR-S-1000.
     Route: 048
     Dates: start: 20120907, end: 20131114

REACTIONS (1)
  - Pancreatic carcinoma [Unknown]
